FAERS Safety Report 7934910-5 (Version None)
Quarter: 2011Q4

REPORT INFORMATION
  Report Type: 
  Country: None (occurrence: None)
  Receive Date: 20111122
  Receipt Date: 20111117
  Transmission Date: 20120403
  Serious: Yes (Other)
  Sender: FDA-Public Use
  Company Number: FR-PFIZER INC-2011221184

PATIENT
  Age: 67 Year
  Sex: Female
  Weight: 79 kg

DRUGS (2)
  1. ALPRAZOLAM [Suspect]
     Indication: HYPERTENSION
  2. ALPRAZOLAM [Suspect]
     Indication: ANXIETY
     Dosage: 0.25 MG, 3X/DAY

REACTIONS (3)
  - PHARYNGEAL OEDEMA [None]
  - FACE OEDEMA [None]
  - SWOLLEN TONGUE [None]
